FAERS Safety Report 4751214-2 (Version None)
Quarter: 2005Q3

REPORT INFORMATION
  Report Type: 
  Country: None (occurrence: None)
  Receive Date: 20050822
  Receipt Date: 20050808
  Transmission Date: 20060218
  Serious: Yes (Life-Threatening)
  Sender: FDA-Public Use
  Company Number: 05H-087-0299851-00

PATIENT
  Age: 72 Year
  Sex: Female
  Weight: 51 kg

DRUGS (4)
  1. PRECEDEX INJECTION (DEXMEDETOMIDINE HYDROCHLORIDE INJECTION) (DEXMEDET [Suspect]
     Indication: SEDATION
     Dosage: SEE IMAGE
     Route: 042
     Dates: start: 20041207, end: 20041207
  2. SINEMET [Concomitant]
  3. CABERGOLINE [Concomitant]
  4. QUETIAPINE FUMARATE [Concomitant]

REACTIONS (1)
  - OBSTRUCTIVE AIRWAYS DISORDER [None]
